FAERS Safety Report 6837526-7 (Version None)
Quarter: 2010Q3

REPORT INFORMATION
  Report Type: 
  Country: None (occurrence: None)
  Receive Date: 20100713
  Receipt Date: 20070516
  Transmission Date: 20110219
  Serious: No
  Sender: FDA-Public Use
  Company Number: US-PFIZER INC-2007038739

PATIENT
  Age: 49 Year
  Sex: Male
  Weight: 68 kg

DRUGS (2)
  1. CHANTIX [Suspect]
     Indication: SMOKING CESSATION THERAPY
     Route: 048
  2. ANTIBIOTICS [Concomitant]

REACTIONS (3)
  - MALAISE [None]
  - NAUSEA [None]
  - SOMNOLENCE [None]
